FAERS Safety Report 8435740-0 (Version None)
Quarter: 2012Q2

REPORT INFORMATION
  Report Type: 
  Country: None (occurrence: None)
  Receive Date: 20120614
  Receipt Date: 20120606
  Transmission Date: 20120825
  Serious: Yes (Other)
  Sender: FDA-Public Use
  Company Number: US-JNJFOC-20120605555

PATIENT
  Age: 61 Year
  Sex: Male
  Weight: 147.42 kg

DRUGS (2)
  1. LISTERINE MOUTHWASH ORIGINAL [Suspect]
     Indication: DENTAL DISORDER PROPHYLAXIS
     Dosage: CUPFUL, 4 TIMES DAILY
     Route: 048
     Dates: end: 20120605
  2. UNKNOWN MEDICATION [Concomitant]
     Indication: DIABETES MELLITUS
     Route: 065

REACTIONS (5)
  - TONGUE DISORDER [None]
  - TONGUE HAEMORRHAGE [None]
  - GLOSSODYNIA [None]
  - TONGUE DRY [None]
  - INAPPROPRIATE SCHEDULE OF DRUG ADMINISTRATION [None]
